FAERS Safety Report 8297913-X (Version None)
Quarter: 2012Q2

REPORT INFORMATION
  Report Type: 
  Country: None (occurrence: None)
  Receive Date: 20120419
  Receipt Date: 20120412
  Transmission Date: 20120825
  Serious: Yes (Other)
  Sender: FDA-Public Use
  Company Number: US-BRISTOL-MYERS SQUIBB COMPANY-16422396

PATIENT
  Age: 75 Year
  Sex: Female
  Weight: 82 kg

DRUGS (4)
  1. LOSARTAN [Concomitant]
  2. LISINOPRIL AND HYDROCHLOROTHIAZIDE [Concomitant]
     Dosage: 1 DF = 20-12.5MG
  3. KOMBIGLYZE XR [Suspect]
     Indication: DIABETES MELLITUS
     Dosage: 1DF= 5/1000MG
     Route: 048
     Dates: start: 20110324, end: 20120213
  4. PRILOSEC [Concomitant]

REACTIONS (1)
  - PANCREATITIS [None]
